FAERS Safety Report 9898270 (Version 2)
Quarter: 2015Q3

REPORT INFORMATION
  Report Type: Spontaneous
  Country: US (occurrence: US)
  Receive Date: 20140214
  Receipt Date: 20150810
  Transmission Date: 20151125
  Serious: Yes (Hospitalization)
  Sender: FDA-Public Use
  Company Number: US-GILEAD-2011-0042450

PATIENT
  Age: 68 Year
  Sex: Female

DRUGS (4)
  1. REVATIO [Concomitant]
     Active Substance: SILDENAFIL CITRATE
  2. LETAIRIS [Suspect]
     Active Substance: AMBRISENTAN
     Indication: PRODUCT USED FOR UNKNOWN INDICATION
     Route: 048
     Dates: start: 20080116
  3. ARANESP [Concomitant]
     Active Substance: DARBEPOETIN ALFA
  4. GLEEVEC [Concomitant]
     Active Substance: IMATINIB MESYLATE

REACTIONS (2)
  - Fluid retention [Unknown]
  - Dyspnoea [Unknown]
